FAERS Safety Report 11884841 (Version 1)
Quarter: 2016Q1

REPORT INFORMATION
  Report Type: Spontaneous
  Country: DE (occurrence: DE)
  Receive Date: 20160104
  Receipt Date: 20160104
  Transmission Date: 20160526
  Serious: Yes (Life-Threatening, Other)
  Sender: FDA-Public Use
  Company Number: DE-DRREDDYS-GER/GER/15/0054993

PATIENT
  Age: 71 Year
  Sex: Female
  Weight: 138 kg

DRUGS (7)
  1. LERCANIDIPINE [Suspect]
     Active Substance: LERCANIDIPINE
     Indication: ATRIAL FIBRILLATION
     Route: 048
  2. DEKRISTOL 20000 [Suspect]
     Active Substance: CHOLECALCIFEROL
     Indication: DIABETIC NEPHROPATHY
  3. FALITHROM [Suspect]
     Active Substance: PHENPROCOUMON
     Indication: ATRIAL FIBRILLATION
     Route: 048
  4. SIMVASTATIN. [Suspect]
     Active Substance: SIMVASTATIN
     Indication: HYPERLIPIDAEMIA
     Route: 048
  5. DIOVAN [Suspect]
     Active Substance: VALSARTAN
     Indication: CARDIAC FAILURE
     Route: 048
  6. TOREM [Suspect]
     Active Substance: TORSEMIDE
     Indication: DIABETIC NEPHROPATHY
     Route: 048
  7. VALSARTAN COMP 160/25 [Suspect]
     Active Substance: HYDROCHLOROTHIAZIDE\VALSARTAN
     Indication: HYPERTENSION
     Route: 048

REACTIONS (9)
  - Toxic epidermal necrolysis [Not Recovered/Not Resolved]
  - Continuous haemodiafiltration [None]
  - Cardiac failure [Not Recovered/Not Resolved]
  - Respiratory failure [Not Recovered/Not Resolved]
  - Septic shock [Unknown]
  - Staphylococcus test positive [None]
  - Hepatic failure [Not Recovered/Not Resolved]
  - Acute kidney injury [Not Recovered/Not Resolved]
  - Corynebacterium test positive [None]

NARRATIVE: CASE EVENT DATE: 20151113
